FAERS Safety Report 5522274-6 (Version None)
Quarter: 2007Q4

REPORT INFORMATION
  Report Type: 
  Country: None (occurrence: None)
  Receive Date: 20071120
  Receipt Date: 20071112
  Transmission Date: 20080405
  Serious: Yes (Hospitalization, Other)
  Sender: FDA-Public Use
  Company Number: US-ELI_LILLY_AND_COMPANY-US200711002641

PATIENT
  Sex: Female

DRUGS (1)
  1. FORTEO [Suspect]
     Indication: OSTEOPOROSIS
     Dates: start: 20060719, end: 20071104

REACTIONS (15)
  - AUTOIMMUNE THYROIDITIS [None]
  - BLOOD AMYLASE INCREASED [None]
  - CHOLECYSTECTOMY [None]
  - FEAR [None]
  - JOINT LOCK [None]
  - LOSS OF CONSCIOUSNESS [None]
  - MUSCLE SPASMS [None]
  - NERVOUSNESS [None]
  - PANCREATITIS [None]
  - PAPILLARY THYROID CANCER [None]
  - PHARYNGOLARYNGEAL PAIN [None]
  - PULMONARY OEDEMA [None]
  - THYROID NEOPLASM [None]
  - VISUAL ACUITY REDUCED [None]
  - VOMITING [None]
